FAERS Safety Report 23447417 (Version 1)
Quarter: 2024Q1

REPORT INFORMATION
  Report Type: Spontaneous
  Country: AU (occurrence: None)
  Receive Date: 20240126
  Receipt Date: 20240126
  Transmission Date: 20240410
  Serious: Yes (Death, Hospitalization)
  Sender: FDA-Public Use
  Company Number: 2024A020593

PATIENT
  Sex: Male

DRUGS (1)
  1. ANDEXANET ALFA [Suspect]
     Active Substance: ANDEXANET ALFA
     Dosage: ONCE,400MG FOLLOWED BY 2-HOUR INFUSION OF 480MG
     Route: 041

REACTIONS (1)
  - Subdural haemorrhage [Fatal]
